FAERS Safety Report 14641531 (Version 1)
Quarter: 2018Q1

REPORT INFORMATION
  Report Type: Spontaneous
  Country: US (occurrence: US)
  Receive Date: 20180315
  Receipt Date: 20180315
  Transmission Date: 20180509
  Serious: No
  Sender: FDA-Public Use
  Company Number: US-MISSION PHARMACAL COMPANY-2043833

PATIENT
  Age: 26 Year
  Sex: Female

DRUGS (6)
  1. BIRTH CONTROL [Concomitant]
     Active Substance: UNSPECIFIED INGREDIENT
     Route: 065
  2. ANTIBIOTIC [Concomitant]
     Active Substance: UNSPECIFIED INGREDIENT
     Route: 065
  3. NASAL SPRAY [Concomitant]
     Active Substance: UNSPECIFIED INGREDIENT
     Route: 065
  4. PAIN MEDS [Concomitant]
     Active Substance: UNSPECIFIED INGREDIENT
     Route: 065
  5. MUCINEX [Concomitant]
     Active Substance: GUAIFENESIN
     Route: 065
  6. THIOLA [Suspect]
     Active Substance: TIOPRONIN
     Indication: URETEROLITHIASIS
     Route: 065
     Dates: start: 20140823

REACTIONS (10)
  - Syncope [Not Recovered/Not Resolved]
  - Pain [Unknown]
  - Infection [Unknown]
  - Drug dose omission [Unknown]
  - Upper respiratory tract infection [Unknown]
  - Sinusitis [Unknown]
  - Drug ineffective [Unknown]
  - Dizziness [Not Recovered/Not Resolved]
  - Dyspnoea [Not Recovered/Not Resolved]
  - Endometriosis [Unknown]
